FAERS Safety Report 4929629-9 (Version None)
Quarter: 2006Q1

REPORT INFORMATION
  Report Type: 
  Country: None (occurrence: None)
  Receive Date: 20060224
  Receipt Date: 20060210
  Transmission Date: 20060701
  Serious: Yes (Other)
  Sender: FDA-Public Use
  Company Number: 2006021392

PATIENT
  Sex: Female

DRUGS (5)
  1. NEURONTIN [Suspect]
     Indication: ARTHRALGIA
     Dosage: 900 MG (300 MG, 3 IN 1 D), ORAL
     Route: 048
     Dates: start: 20000101
  2. LYRICA [Suspect]
     Indication: HEADACHE
     Dosage: 400 MG (200 MG, 2 IN 1 D)
     Dates: start: 20060202
  3. ZANAFLEX [Concomitant]
  4. MAXALT-MLT (RIZATRIPTAN BENZOATE) [Concomitant]
  5. ALL OTHER THERAPEUTIC PRODUCTS (ALL OTHER THERAPEUTIC PRODUCTS) [Concomitant]

REACTIONS (3)
  - CARPAL TUNNEL SYNDROME [None]
  - HEADACHE [None]
  - SPINAL CORD OPERATION [None]
